FAERS Safety Report 5123609-9 (Version None)
Quarter: 2006Q4

REPORT INFORMATION
  Report Type: 
  Country: None (occurrence: None)
  Receive Date: 20060910
  Receipt Date: 20051028
  Transmission Date: 20070319
  Serious: Yes (Hospitalization, Other)
  Sender: FDA-Public Use
  Company Number: USA0510112222

PATIENT
  Age: 18 Year
  Sex: Female

DRUGS (4)
  1. INSULIN [Suspect]
     Indication: DIABETES MELLITUS
     Dosage: SUBCUTANEOUS
     Route: 058
  2. HUMALOG [Suspect]
     Indication: DIABETES MELLITUS
     Dosage: SUBCUTANEOUS
     Route: 058
     Dates: start: 20000101
  3. NOVOLIN N [Concomitant]
  4. LANTUS [Concomitant]

REACTIONS (4)
  - BLOOD GLUCOSE DECREASED [None]
  - CELLULITIS [None]
  - DIABETES MELLITUS INADEQUATE CONTROL [None]
  - DIABETIC HYPERGLYCAEMIC COMA [None]
